FAERS Safety Report 15744387 (Version 1)
Quarter: 2018Q4

REPORT INFORMATION
  Report Type: Spontaneous
  Country: DE (occurrence: DE)
  Receive Date: 20181220
  Receipt Date: 20181220
  Transmission Date: 20190205
  Serious: Yes (Other)
  Sender: FDA-Public Use
  Company Number: DE-NODEN PHARMA DAC-NOD-2018-000105

PATIENT

DRUGS (1)
  1. RASILEZ [Suspect]
     Active Substance: ALISKIREN
     Indication: PRODUCT USED FOR UNKNOWN INDICATION
     Dosage: UNK
     Route: 065

REACTIONS (2)
  - Pulmonary vascular disorder [Recovered/Resolved]
  - Dyspnoea [Recovered/Resolved]
